FAERS Safety Report 8942320 (Version 1)
Quarter: 2012Q4

REPORT INFORMATION
  Report Type: Spontaneous
  Country: US (occurrence: None)
  Receive Date: 20121123
  Receipt Date: 20121123
  Transmission Date: 20130627
  Serious: Yes (Other)
  Sender: FDA-Public Use
  Company Number: 2012SUN00282

PATIENT
  Age: 10 Year
  Sex: Male

DRUGS (7)
  1. PHENYTOIN SODIUM [Suspect]
     Indication: DRUG USE FOR UNKNOWN INDICATION
  2. POSACONAZOLE [Suspect]
  3. POSACONAZOLE [Suspect]
  4. POSACONAZOLE [Suspect]
  5. PANTOPRAZOLE [Concomitant]
  6. FAMOTIDINE [Concomitant]
  7. SUCRALFATE [Concomitant]

REACTIONS (7)
  - Drug interaction [None]
  - Drug level decreased [None]
  - Lacunar infarction [None]
  - Cellulitis orbital [None]
  - Encephalitis [None]
  - Sinusitis [None]
  - Sinusitis [None]
